FAERS Safety Report 4708662-6 (Version None)
Quarter: 2005Q3

REPORT INFORMATION
  Report Type: 
  Country: None (occurrence: None)
  Receive Date: 20050706
  Receipt Date: 20050621
  Transmission Date: 20060218
  Serious: Yes (Death)
  Sender: FDA-Public Use
  Company Number: 2005BI003988

PATIENT
  Age: 57 Year
  Sex: Female

DRUGS (13)
  1. AMEVIVE [Suspect]
     Indication: PUSTULAR PSORIASIS
     Dosage: 15 MG; QW; IM
     Route: 030
     Dates: start: 20050103, end: 20050201
  2. AMEVIVE [Suspect]
     Indication: PUSTULAR PSORIASIS
     Dosage: 15 MG; QW; IM
     Route: 030
     Dates: start: 20041111
  3. COUMADIN [Concomitant]
  4. TAC [Concomitant]
  5. PROTOPIC [Concomitant]
  6. POTASSIUM CHLORIDE [Concomitant]
  7. ALDACTONE [Concomitant]
  8. BUMEX [Concomitant]
  9. WELLBUTRIN [Concomitant]
  10. DUONEB [Concomitant]
  11. PULMICORT [Concomitant]
  12. FERROUS SULFATE TAB [Concomitant]
  13. B12 [Concomitant]

REACTIONS (1)
  - DEATH [None]
